FAERS Safety Report 5443288-0 (Version None)
Quarter: 2007Q3

REPORT INFORMATION
  Report Type: 
  Country: None (occurrence: None)
  Receive Date: 20070830
  Receipt Date: 20070816
  Transmission Date: 20080115
  Serious: Yes (Death, Hospitalization)
  Sender: FDA-Public Use
  Company Number: AZADE200700307

PATIENT
  Age: 59 Year
  Sex: Male

DRUGS (4)
  1. VIDAZA [Suspect]
     Indication: MYELODYSPLASTIC SYNDROME
     Dosage: (100 MG/M2), SUBCUTANEOUS
     Route: 058
     Dates: start: 20070514, end: 20070518
  2. VALPROIC ACID [Concomitant]
  3. NEUPOGEN [Concomitant]
  4. UNSPECIFIED ANTIINFECTIVE THERAPY (ANTIINFECTIVES) [Concomitant]

REACTIONS (18)
  - ANAEMIA [None]
  - APLASIA [None]
  - ATRIAL FIBRILLATION [None]
  - CATHETER SITE HAEMORRHAGE [None]
  - CONVULSION [None]
  - FEBRILE NEUTROPENIA [None]
  - GENERAL PHYSICAL HEALTH DETERIORATION [None]
  - HAEMOPTYSIS [None]
  - LEFT VENTRICULAR FAILURE [None]
  - LOWER RESPIRATORY TRACT INFECTION FUNGAL [None]
  - NAUSEA [None]
  - NIGHT SWEATS [None]
  - PERICARDIAL EFFUSION [None]
  - PNEUMONIA [None]
  - POST PROCEDURAL COMPLICATION [None]
  - REFUSAL OF TREATMENT BY PATIENT [None]
  - RENAL FAILURE ACUTE [None]
  - SEPSIS [None]
